FAERS Safety Report 19397524 (Version 1)
Quarter: 2021Q2

REPORT INFORMATION
  Report Type: Spontaneous
  Country: CN (occurrence: CN)
  Receive Date: 20210609
  Receipt Date: 20210609
  Transmission Date: 20210717
  Serious: Yes (Death, Hospitalization, Other)
  Sender: FDA-Public Use
  Company Number: CN-ASTRAZENECA-2021A496530

PATIENT
  Age: 91 Year
  Sex: Female
  Weight: 45 kg

DRUGS (4)
  1. BISOPROLOL FUMARATE. [Concomitant]
     Active Substance: BISOPROLOL FUMARATE
     Indication: CORONARY ARTERY DISEASE
     Route: 048
     Dates: start: 20180821, end: 20190207
  2. BRILINTA [Suspect]
     Active Substance: TICAGRELOR
     Indication: RESTENOSIS
     Route: 048
     Dates: start: 20180821, end: 20190207
  3. ASPIRIN. [Concomitant]
     Active Substance: ASPIRIN
     Indication: CORONARY ARTERY DISEASE
     Route: 048
     Dates: start: 20180821, end: 20190207
  4. ATORVASTATIN CALCIUM. [Concomitant]
     Active Substance: ATORVASTATIN CALCIUM
     Indication: CORONARY ARTERY DISEASE
     Route: 048
     Dates: start: 20180821, end: 20190207

REACTIONS (9)
  - Hyperuricaemia [Fatal]
  - Cardiac failure [Fatal]
  - Pneumonia [Fatal]
  - Altered state of consciousness [Unknown]
  - Acute coronary syndrome [Fatal]
  - Gamma-glutamyltransferase increased [Unknown]
  - Feeding disorder [Unknown]
  - Diabetes mellitus [Fatal]
  - Renal failure [Fatal]

NARRATIVE: CASE EVENT DATE: 20190208
